FAERS Safety Report 22214645 (Version 1)
Quarter: 2023Q2

REPORT INFORMATION
  Report Type: Spontaneous
  Country: US (occurrence: US)
  Receive Date: 20230415
  Receipt Date: 20230415
  Transmission Date: 20230722
  Serious: No
  Sender: FDA-Public Use
  Company Number: US-ABBVIE-4697478

PATIENT
  Sex: Female

DRUGS (1)
  1. SYNTHROID [Suspect]
     Active Substance: LEVOTHYROXINE SODIUM
     Indication: Product used for unknown indication
     Route: 048

REACTIONS (6)
  - Incorrect dose administered [Unknown]
  - Lipids abnormal [Unknown]
  - Bone density abnormal [Unknown]
  - Headache [Not Recovered/Not Resolved]
  - Chest pain [Unknown]
  - Palpitations [Unknown]
